FAERS Safety Report 6857554-5 (Version None)
Quarter: 2010Q3

REPORT INFORMATION
  Report Type: 
  Country: None (occurrence: None)
  Receive Date: 20100719
  Receipt Date: 20080126
  Transmission Date: 20110219
  Serious: No
  Sender: FDA-Public Use
  Company Number: US-PFIZER INC-2008008708

PATIENT
  Sex: Female
  Weight: 68 kg

DRUGS (7)
  1. CHANTIX [Suspect]
     Dates: start: 20080101
  2. SEROQUEL [Concomitant]
  3. LEXAPRO [Concomitant]
  4. DEPAKOTE [Concomitant]
  5. ROZEREM [Concomitant]
     Indication: INSOMNIA
  6. XANAX [Concomitant]
     Indication: ANXIETY
  7. PERCOCET [Concomitant]
     Indication: OSTEOARTHRITIS

REACTIONS (1)
  - SENSORY LOSS [None]
